FAERS Safety Report 14394488 (Version 2)
Quarter: 2018Q1

REPORT INFORMATION
  Report Type: Spontaneous
  Country: GB (occurrence: GB)
  Receive Date: 20180116
  Receipt Date: 20180214
  Transmission Date: 20180509
  Serious: Yes (Other)
  Sender: FDA-Public Use
  Company Number: GB-SA-2018SA008164

PATIENT
  Sex: Male

DRUGS (3)
  1. HUMULIN L [Concomitant]
     Active Substance: INSULIN HUMAN
     Route: 065
  2. SOLOSTAR [Suspect]
     Active Substance: DEVICE
  3. TOUJEO [Suspect]
     Active Substance: INSULIN GLARGINE
     Route: 051

REACTIONS (7)
  - Ill-defined disorder [Recovered/Resolved]
  - Hallucination [Recovered/Resolved]
  - Angioedema [Recovered/Resolved]
  - Nausea [Recovered/Resolved]
  - Feeling abnormal [Recovered/Resolved]
  - Agitation [Recovered/Resolved]
  - Gingival swelling [Recovered/Resolved]
